FAERS Safety Report 15898502 (Version 1)
Quarter: 2019Q1

REPORT INFORMATION
  Report Type: Spontaneous
  Country: FR (occurrence: FR)
  Receive Date: 20190201
  Receipt Date: 20190201
  Transmission Date: 20190417
  Serious: Yes (Life-Threatening)
  Sender: FDA-Public Use
  Company Number: FR-ACCORD-104586

PATIENT
  Age: 72 Year
  Sex: Male
  Weight: 65 kg

DRUGS (20)
  1. VALSARTAN. [Concomitant]
     Active Substance: VALSARTAN
     Route: 048
  2. EMEND [Concomitant]
     Active Substance: APREPITANT
     Route: 048
     Dates: start: 20180808
  3. ONDANSETRON [Concomitant]
     Active Substance: ONDANSETRON
     Route: 042
     Dates: start: 20180808
  4. MECIR L.P. [Concomitant]
     Active Substance: TAMSULOSIN HYDROCHLORIDE
     Route: 048
  5. BRICANYL [Concomitant]
     Active Substance: TERBUTALINE SULFATE
     Route: 055
  6. LOVENOX [Concomitant]
     Active Substance: ENOXAPARIN SODIUM
     Route: 058
  7. LYRICA [Concomitant]
     Active Substance: PREGABALIN
     Route: 048
  8. FUROSEMIDE. [Concomitant]
     Active Substance: FUROSEMIDE
     Dosage: 60 MG IN THE MORNING AND 40 MG IN THE NOON
     Route: 048
  9. SPORANOX [Concomitant]
     Active Substance: ITRACONAZOLE
     Route: 048
  10. ETOPOSIDE. [Suspect]
     Active Substance: ETOPOSIDE
     Indication: SMALL CELL LUNG CANCER RECURRENT
     Dosage: D2 INFUSION STOPPED BEFORE THE END
     Route: 041
     Dates: start: 20180808, end: 20180809
  11. AMLODIPINE [Concomitant]
     Active Substance: AMLODIPINE BESYLATE
     Route: 048
  12. CARBOPLATIN. [Suspect]
     Active Substance: CARBOPLATIN
     Indication: SMALL CELL LUNG CANCER RECURRENT
     Route: 041
  13. JANUVIA [Concomitant]
     Active Substance: SITAGLIPTIN PHOSPHATE
     Route: 048
  14. PRIMPERAN [Concomitant]
     Active Substance: METOCLOPRAMIDE HYDROCHLORIDE
     Route: 042
     Dates: start: 20180808
  15. NOVORAPID [Concomitant]
     Active Substance: INSULIN ASPART
     Dosage: ACCORDING TO PRE-MEAL BLOOD GLUCOSE
     Route: 058
  16. HYDROXYZINE [Concomitant]
     Active Substance: HYDROXYZINE HYDROCHLORIDE
     Route: 048
  17. DIFFU K [Concomitant]
     Active Substance: POTASSIUM CHLORIDE
     Dosage: ACCORDING TO THE SERUM POTASSIUM
     Route: 048
  18. METHYLPREDNISOLONE. [Concomitant]
     Active Substance: METHYLPREDNISOLONE
     Route: 042
     Dates: start: 20180808
  19. IPRATROPIUM/IPRATROPIUM BROMIDE [Concomitant]
     Route: 055
  20. ALDACTONE [Concomitant]
     Active Substance: SPIRONOLACTONE
     Route: 048

REACTIONS (1)
  - Tumour lysis syndrome [Recovered/Resolved with Sequelae]

NARRATIVE: CASE EVENT DATE: 20180809
